FAERS Safety Report 25897702 (Version 1)
Quarter: 2025Q4

REPORT INFORMATION
  Report Type: Spontaneous
  Country: GB (occurrence: GB)
  Receive Date: 20251008
  Receipt Date: 20251008
  Transmission Date: 20260117
  Serious: Yes (Other)
  Sender: ESPERION THERAPEUTICS
  Company Number: GB-DAIICHI SANKYO EUROPE GMBH-DS-2025-166264-GB

PATIENT

DRUGS (3)
  1. BEMPEDOIC ACID\EZETIMIBE [Suspect]
     Active Substance: BEMPEDOIC ACID\EZETIMIBE
     Indication: Lipid management
     Dosage: 1 DOSAGE FORM, QD (180/10 MG) AT NIGHT
     Route: 048
     Dates: start: 202506
  2. ASPIRIN [Concomitant]
     Active Substance: ASPIRIN
     Indication: Dressler^s syndrome
     Dosage: 75 MG, QD
     Route: 048
     Dates: start: 20160627
  3. RAMIPRIL [Concomitant]
     Active Substance: RAMIPRIL
     Indication: Dressler^s syndrome
     Dosage: 5 MG, QD
     Route: 048
     Dates: start: 20191206

REACTIONS (1)
  - Chronic kidney disease [Unknown]

NARRATIVE: CASE EVENT DATE: 20250911
